FAERS Safety Report 4569278-8 (Version None)
Quarter: 2005Q1

REPORT INFORMATION
  Report Type: 
  Country: None (occurrence: None)
  Receive Date: 20050203
  Receipt Date: 20050125
  Transmission Date: 20050727
  Serious: Yes (Other)
  Sender: FDA-Public Use
  Company Number: US-GLAXOSMITHKLINE-A0542121A

PATIENT
  Age: 71 Year

DRUGS (1)
  1. CONTAC 12-HOUR COLD CAPSULE [Suspect]
     Indication: NASOPHARYNGITIS
     Route: 048

REACTIONS (4)
  - BLADDER CANCER [None]
  - BLADDER NEOPLASM [None]
  - CARDIAC FAILURE [None]
  - EJECTION FRACTION DECREASED [None]
